FAERS Safety Report 8600634 (Version 2)
Quarter: 2013Q2

REPORT INFORMATION
  Report Type: Report from Study
  Country: MX (occurrence: MX)
  Receive Date: 20120606
  Receipt Date: 20130429
  Transmission Date: 20140414
  Serious: Yes (Death)
  Sender: FDA-Public Use
  Company Number: PHHY2012MX047828

PATIENT
  Age: 78 Year
  Sex: Female

DRUGS (1)
  1. ACLASTA [Suspect]
     Indication: OSTEOPOROSIS
     Dosage: 5 MG/100ML PER YEAR
     Route: 042
     Dates: start: 201109

REACTIONS (8)
  - Bladder cancer [Fatal]
  - Bone neoplasm [Fatal]
  - Pelvic neoplasm [Fatal]
  - Metastases to neck [Fatal]
  - Dysphagia [Fatal]
  - Pain [Fatal]
  - Cardiac arrest [Fatal]
  - Hypotension [Fatal]
